FAERS Safety Report 25147019 (Version 3)
Quarter: 2025Q2

REPORT INFORMATION
  Report Type: Spontaneous
  Country: AR (occurrence: AR)
  Receive Date: 20250401
  Receipt Date: 20250423
  Transmission Date: 20250717
  Serious: No
  Sender: PFIZER
  Company Number: AR-PFIZER INC-202500065887

PATIENT
  Age: 8 Year
  Sex: Male

DRUGS (1)
  1. GENOTROPIN [Suspect]
     Active Substance: SOMATROPIN
     Indication: Prader-Willi syndrome
     Dosage: 2 MG, DAILY
     Dates: start: 20241125

REACTIONS (3)
  - Device mechanical issue [Unknown]
  - Wrong technique in device usage process [Unknown]
  - Administration site pain [Unknown]

NARRATIVE: CASE EVENT DATE: 20250301
